FAERS Safety Report 13376739 (Version 1)
Quarter: 2017Q1

REPORT INFORMATION
  Report Type: Spontaneous
  Country: US (occurrence: US)
  Receive Date: 20170328
  Receipt Date: 20170328
  Transmission Date: 20170429
  Serious: No
  Sender: FDA-Public Use
  Company Number: US-BAYER-2017-058385

PATIENT
  Age: 84 Year
  Sex: Female
  Weight: 67.98 kg

DRUGS (2)
  1. CLARITIN [Suspect]
     Active Substance: LORATADINE
     Indication: NASOPHARYNGITIS
  2. CLARITIN [Suspect]
     Active Substance: LORATADINE
     Indication: HYPERSENSITIVITY
     Dosage: 1 TABLET DAILY
     Route: 048
     Dates: start: 20170317, end: 20170326

REACTIONS (4)
  - Somnolence [Unknown]
  - Therapeutic response unexpected [Unknown]
  - Drug effect incomplete [Unknown]
  - Product use issue [Unknown]

NARRATIVE: CASE EVENT DATE: 20170317
